FAERS Safety Report 17588693 (Version 1)
Quarter: 2020Q1

REPORT INFORMATION
  Report Type: Report from Study
  Country: US (occurrence: US)
  Receive Date: 20200327
  Receipt Date: 20200327
  Transmission Date: 20200409
  Serious: Yes (Other)
  Sender: FDA-Public Use
  Company Number: US-ROCHE-2568941

PATIENT

DRUGS (2)
  1. TOSEDOSTAT [Suspect]
     Active Substance: TOSEDOSTAT
     Indication: DUCTAL ADENOCARCINOMA OF PANCREAS
     Route: 048
  2. CAPECITABINE. [Suspect]
     Active Substance: CAPECITABINE
     Indication: DUCTAL ADENOCARCINOMA OF PANCREAS
     Route: 048

REACTIONS (5)
  - Acute coronary syndrome [Unknown]
  - Diarrhoea [Unknown]
  - Nausea [Unknown]
  - Fatigue [Unknown]
  - Electrocardiogram QT prolonged [Unknown]
